FAERS Safety Report 7831196-7 (Version None)
Quarter: 2011Q4

REPORT INFORMATION
  Report Type: 
  Country: None (occurrence: None)
  Receive Date: 20111021
  Receipt Date: 20111017
  Transmission Date: 20120403
  Serious: Yes (Death)
  Sender: FDA-Public Use
  Company Number: SA-ROCHE-777172

PATIENT
  Age: 22 Year
  Sex: Male
  Weight: 105 kg

DRUGS (2)
  1. PEGASYS [Suspect]
     Indication: HEPATITIS B
     Route: 058
  2. ENTECAVIR [Concomitant]
     Indication: HEPATITIS B
     Dosage: DRUG REPORTED: ENTICAVIR ORAL

REACTIONS (1)
  - DEATH [None]
